FAERS Safety Report 4676842-4 (Version None)
Quarter: 2005Q2

REPORT INFORMATION
  Report Type: 
  Country: None (occurrence: None)
  Receive Date: 20050527
  Receipt Date: 20050517
  Transmission Date: 20051028
  Serious: Yes (Other)
  Sender: FDA-Public Use
  Company Number: US-2005-006715

PATIENT
  Age: 28 Year
  Sex: Female

DRUGS (5)
  1. MIRENA [Suspect]
     Dosage: 20 UG/DAY, CONT, INTRA-UTERINE
     Route: 015
     Dates: start: 20040301
  2. THYROXIN T3 (LEVOTHYROXINE SODIUM, LIOTHYRONINE) [Concomitant]
  3. MOTRIN [Concomitant]
  4. ZOLOFT [Concomitant]
  5. SYNTHROID [Concomitant]

REACTIONS (22)
  - ABORTION SPONTANEOUS [None]
  - ARTHRALGIA [None]
  - BACK PAIN [None]
  - BLOOD BICARBONATE DECREASED [None]
  - BLOOD PH DECREASED [None]
  - BLOOD URINE [None]
  - CHEST PAIN [None]
  - COLLAPSE OF LUNG [None]
  - COMPLICATION OF DEVICE REMOVAL [None]
  - COUGH [None]
  - DEVICE FAILURE [None]
  - DIAPHRAGMATIC DISORDER [None]
  - DRUG EXPOSURE DURING PREGNANCY [None]
  - DYSPNOEA [None]
  - ELECTROCARDIOGRAM ST-T SEGMENT ABNORMAL [None]
  - IUCD COMPLICATION [None]
  - NERVE COMPRESSION [None]
  - PCO2 INCREASED [None]
  - PNEUMOPERITONEUM [None]
  - POST PROCEDURAL COMPLICATION [None]
  - PREGNANCY WITH CONTRACEPTIVE DEVICE [None]
  - WHITE BLOOD CELL COUNT INCREASED [None]
